FAERS Safety Report 5465067-0 (Version None)
Quarter: 2007Q3

REPORT INFORMATION
  Report Type: 
  Country: None (occurrence: None)
  Receive Date: 20070820
  Receipt Date: 20070607
  Transmission Date: 20080115
  Serious: No
  Sender: FDA-Public Use
  Company Number: TPA2007A01052

PATIENT
  Age: 76 Year
  Sex: Female
  Weight: 67.1324 kg

DRUGS (8)
  1. ROZEREM [Suspect]
     Indication: INITIAL INSOMNIA
     Dosage: 8 MG, HS, PER ORAL
     Route: 048
     Dates: start: 20070501, end: 20070501
  2. VYTORIN [Concomitant]
  3. WARFARIN SODIUM [Concomitant]
  4. COZAAR [Concomitant]
  5. NORVASC [Concomitant]
  6. ACTONEL [Concomitant]
  7. SYNTHROID [Concomitant]
  8. NEXIUM [Concomitant]

REACTIONS (1)
  - DRUG INEFFECTIVE [None]
